FAERS Safety Report 7202381-2 (Version None)
Quarter: 2010Q4

REPORT INFORMATION
  Report Type: 
  Country: None (occurrence: None)
  Receive Date: 20101229
  Receipt Date: 20101225
  Transmission Date: 20110411
  Serious: No
  Sender: FDA-Public Use
  Company Number: US-PFIZER INC-2010179072

PATIENT
  Sex: Female

DRUGS (2)
  1. NEURONTIN [Suspect]
     Dosage: UNK
  2. WELLBUTRIN [Concomitant]
     Dosage: UNK

REACTIONS (3)
  - FEELING DRUNK [None]
  - MALAISE [None]
  - NAUSEA [None]
